FAERS Safety Report 9216144 (Version 1)
Quarter: 2013Q2

REPORT INFORMATION
  Report Type: Spontaneous
  Country: US (occurrence: US)
  Receive Date: 20130408
  Receipt Date: 20130408
  Transmission Date: 20140414
  Serious: Yes (Other)
  Sender: FDA-Public Use
  Company Number: US-ACCORD-017026

PATIENT
  Age: 60 Year
  Sex: Female
  Weight: 56.36 kg

DRUGS (2)
  1. MYCOPHENOLATE MOFETIL [Suspect]
     Indication: ORGANISING PNEUMONIA
     Dosage: DAILY DOSE: 1000 MG,
     Route: 048
     Dates: start: 20130219, end: 20130220
  2. PREDNISONE [Concomitant]
     Indication: ORGANISING PNEUMONIA
     Dosage: DAILY DOSE: 10 MG,
     Route: 048
     Dates: start: 201302

REACTIONS (3)
  - Feeling abnormal [Recovered/Resolved]
  - Unresponsive to stimuli [Recovered/Resolved]
  - Off label use [Unknown]
